FAERS Safety Report 5208302-6 (Version None)
Quarter: 2007Q1

REPORT INFORMATION
  Report Type: 
  Country: None (occurrence: None)
  Receive Date: 20070110
  Receipt Date: 20070110
  Transmission Date: 20070707
  Serious: Yes (Life-Threatening, Hospitalization)
  Sender: FDA-Public Use
  Company Number: None

PATIENT
  Age: 42 Year
  Sex: Male

DRUGS (1)
  1. BACTRIM DS [Suspect]
     Indication: FOLLICULITIS
     Dosage: 2 TABLETS TWICE A DAY PO
     Route: 048

REACTIONS (2)
  - NAUSEA [None]
  - STEVENS-JOHNSON SYNDROME [None]
